FAERS Safety Report 7391453-8 (Version None)
Quarter: 2011Q2

REPORT INFORMATION
  Report Type: 
  Country: None (occurrence: None)
  Receive Date: 20110404
  Receipt Date: 20101029
  Transmission Date: 20111010
  Serious: Yes (Hospitalization)
  Sender: FDA-Public Use
  Company Number: US-BAYER-201027900NA

PATIENT
  Sex: Female
  Weight: 71.818 kg

DRUGS (2)
  1. YAZ [Suspect]
     Indication: PULMONARY EMBOLISM
     Dosage: 3 MG - 0.02 MG
     Route: 048
     Dates: start: 20080501, end: 20080727
  2. METHYLPHENIDATE [Concomitant]
     Indication: PULMONARY EMBOLISM
     Dosage: 10 MG (DAILY DOSE), , UNKNOWN
     Route: 065
     Dates: start: 20080131, end: 20080707

REACTIONS (6)
  - DEEP VEIN THROMBOSIS [None]
  - DYSPNOEA [None]
  - MUSCLE SPASMS [None]
  - PULMONARY EMBOLISM [None]
  - CHEST PAIN [None]
  - PAIN IN EXTREMITY [None]
